FAERS Safety Report 19512331 (Version 4)
Quarter: 2025Q3

REPORT INFORMATION
  Report Type: Report from Study
  Country: EG (occurrence: EG)
  Receive Date: 20210709
  Receipt Date: 20250910
  Transmission Date: 20251021
  Serious: Yes (Other)
  Sender: NOVARTIS
  Company Number: EG-NOVARTISPH-NVSC2021EG065263

PATIENT
  Age: 22 Year
  Sex: Female
  Weight: 90 kg

DRUGS (9)
  1. COSENTYX [Suspect]
     Active Substance: SECUKINUMAB
     Indication: Psoriasis
     Dosage: 300 MG, QMO (150 MG 2 PENS)
     Route: 058
     Dates: start: 2014, end: 2016
  2. COSENTYX [Suspect]
     Active Substance: SECUKINUMAB
     Dosage: 150 MG, QW (2 PENS WEEKLY FOR 1 MONTH)
     Route: 058
     Dates: start: 2015, end: 201609
  3. COSENTYX [Suspect]
     Active Substance: SECUKINUMAB
     Dosage: 300 MG, QMO (150 MG 2 PENS)
     Route: 058
     Dates: start: 2017, end: 202103
  4. COSENTYX [Suspect]
     Active Substance: SECUKINUMAB
     Dosage: 150 MG, QW (2 PENS WEEKLY FOR 1 MONTH)
     Route: 058
     Dates: start: 201711, end: 202104
  5. COSENTYX [Suspect]
     Active Substance: SECUKINUMAB
     Dosage: 300 MG, QMO (2 DF)
     Route: 058
     Dates: start: 20210205, end: 202103
  6. COSENTYX [Suspect]
     Active Substance: SECUKINUMAB
     Dosage: 150 MG, QW (2 PENS WEEKLY FOR 1 MONTH)
     Route: 058
     Dates: start: 202106
  7. COSENTYX [Suspect]
     Active Substance: SECUKINUMAB
     Route: 065
     Dates: end: 202108
  8. COSENTYX [Suspect]
     Active Substance: SECUKINUMAB
     Dosage: 150 MG, QMO (8 YEARS AGO) TWO PREFILLED PENS OF COSENTYX 150MG MONTHLY
     Route: 058
     Dates: end: 202109
  9. FOLIC ACID [Concomitant]
     Active Substance: FOLIC ACID
     Indication: Product used for unknown indication
     Dosage: 1 DOSAGE FORM, QD
     Route: 065

REACTIONS (7)
  - Abortion [Unknown]
  - Uterine leiomyoma [Not Recovered/Not Resolved]
  - Fatigue [Recovered/Resolved]
  - Fatigue [Recovered/Resolved]
  - Psoriasis [Recovered/Resolved]
  - Psoriasis [Recovering/Resolving]
  - Maternal exposure during pregnancy [Unknown]

NARRATIVE: CASE EVENT DATE: 20170101
